FAERS Safety Report 19913665 (Version 3)
Quarter: 2021Q4

REPORT INFORMATION
  Report Type: Report from Study
  Country: JP (occurrence: None)
  Receive Date: 20211004
  Receipt Date: 20211118
  Transmission Date: 20220303
  Serious: Yes (Death)
  Sender: FDA-Public Use
  Company Number: JP-MERCK HEALTHCARE KGAA-9269258

PATIENT
  Age: 61 Year
  Sex: Male

DRUGS (2)
  1. BAVENCIO [Suspect]
     Active Substance: AVELUMAB
     Indication: Renal cell carcinoma
     Route: 041
     Dates: start: 20210831, end: 20210831
  2. INLYTA [Concomitant]
     Active Substance: AXITINIB
     Indication: Renal cell carcinoma
     Route: 048
     Dates: start: 20210901, end: 20210903

REACTIONS (1)
  - Tumour lysis syndrome [Fatal]

NARRATIVE: CASE EVENT DATE: 20210905
